FAERS Safety Report 4982836-1 (Version None)
Quarter: 2006Q2

REPORT INFORMATION
  Report Type: 
  Country: None (occurrence: None)
  Receive Date: 20060425
  Receipt Date: 20050930
  Transmission Date: 20061013
  Serious: Yes (Hospitalization, Other)
  Sender: FDA-Public Use
  Company Number: US-MERCK-0510USA02108

PATIENT
  Age: 62 Year
  Sex: Female
  Weight: 134 kg

DRUGS (2)
  1. VIOXX [Suspect]
     Indication: ARTHRITIS
     Route: 048
     Dates: start: 20001001, end: 20030601
  2. VIOXX [Suspect]
     Route: 048
     Dates: start: 20001001, end: 20030601

REACTIONS (18)
  - ARTERIAL OCCLUSIVE DISEASE [None]
  - CARDIAC FAILURE [None]
  - CORONARY ARTERY DISEASE [None]
  - DYSPNOEA EXERTIONAL [None]
  - ELECTROCARDIOGRAM T WAVE ABNORMAL [None]
  - EMOTIONAL DISORDER [None]
  - FEMORAL ARTERIAL STENOSIS [None]
  - FEMORAL ARTERY OCCLUSION [None]
  - HYPOAESTHESIA [None]
  - INTERMITTENT CLAUDICATION [None]
  - NERVOUSNESS [None]
  - OEDEMA PERIPHERAL [None]
  - OVERDOSE [None]
  - PAIN IN EXTREMITY [None]
  - PERIPHERAL VASCULAR DISORDER [None]
  - RENAL ARTERY STENOSIS [None]
  - RENAL HYPERTENSION [None]
  - THROMBOSIS [None]
